FAERS Safety Report 4966916-2 (Version None)
Quarter: 2006Q2

REPORT INFORMATION
  Report Type: 
  Country: None (occurrence: None)
  Receive Date: 20060407
  Receipt Date: 20051214
  Transmission Date: 20061013
  Serious: Yes (Hospitalization)
  Sender: FDA-Public Use
  Company Number: US-MERCK-0512USA02244

PATIENT
  Age: 79 Year
  Sex: Female
  Weight: 91 kg

DRUGS (10)
  1. VIOXX [Suspect]
     Indication: ARTHRITIS
     Route: 048
     Dates: start: 20001001, end: 20040701
  2. LIPITOR [Concomitant]
     Route: 065
  3. METFORMIN HYDROCHLORIDE [Concomitant]
     Route: 065
  4. NEURONTIN [Concomitant]
     Route: 065
  5. LISINOPRIL [Concomitant]
     Route: 065
  6. DETROL LA [Concomitant]
     Route: 065
  7. LEVOXYL [Concomitant]
     Route: 065
  8. ATENOLOL [Concomitant]
     Route: 065
  9. HYDROCODONE HYDROCHLORIDE [Concomitant]
     Route: 065
  10. NORVASC [Concomitant]
     Route: 065

REACTIONS (1)
  - MYOCARDIAL INFARCTION [None]
